FAERS Safety Report 19381567 (Version 6)
Quarter: 2022Q2

REPORT INFORMATION
  Report Type: Spontaneous
  Country: GB (occurrence: GB)
  Receive Date: 20210607
  Receipt Date: 20220512
  Transmission Date: 20220721
  Serious: Yes (Hospitalization, Other)
  Sender: FDA-Public Use
  Company Number: GB-OTSUKA-2020_012189

PATIENT
  Age: 93 Year
  Sex: Female

DRUGS (25)
  1. OLANZAPINE [Suspect]
     Active Substance: OLANZAPINE
     Indication: Schizoaffective disorder
     Dosage: UNK (EVERY)
     Route: 065
  2. OLANZAPINE [Suspect]
     Active Substance: OLANZAPINE
     Dosage: 5 MG (EVERY)
     Route: 065
  3. OLANZAPINE [Suspect]
     Active Substance: OLANZAPINE
     Dosage: 5 MG
     Route: 065
  4. BISOPROLOL [Suspect]
     Active Substance: BISOPROLOL
     Dosage: UNK
     Route: 065
  5. BISOPROLOL [Suspect]
     Active Substance: BISOPROLOL
     Dosage: UNK
     Route: 065
  6. ARIPIPRAZOLE [Suspect]
     Active Substance: ARIPIPRAZOLE
     Indication: Schizoaffective disorder depressive type
     Dosage: UNK
     Route: 002
  7. ARIPIPRAZOLE [Suspect]
     Active Substance: ARIPIPRAZOLE
     Dosage: UNK (EVERY)
     Route: 002
  8. ARIPIPRAZOLE [Suspect]
     Active Substance: ARIPIPRAZOLE
     Dosage: UNK
     Route: 065
  9. DIGOXIN [Suspect]
     Active Substance: DIGOXIN
     Indication: Product used for unknown indication
     Dosage: UNK
     Route: 065
  10. DIGOXIN [Suspect]
     Active Substance: DIGOXIN
     Dosage: UNK
     Route: 065
  11. ZUCLOPENTHIXOL [Suspect]
     Active Substance: ZUCLOPENTHIXOL
     Indication: Schizoaffective disorder
     Dosage: UNK
     Route: 065
  12. ZUCLOPENTHIXOL [Suspect]
     Active Substance: ZUCLOPENTHIXOL
     Indication: Schizoaffective disorder
     Dosage: UNK (EVERY)
     Route: 065
  13. ZUCLOPENTHIXOL [Suspect]
     Active Substance: ZUCLOPENTHIXOL
     Dosage: UNK
     Route: 065
  14. ZUCLOPENTHIXOL HYDROCHLORIDE [Suspect]
     Active Substance: ZUCLOPENTHIXOL HYDROCHLORIDE
     Indication: Schizoaffective disorder
     Dosage: UNK
     Route: 065
  15. ZUCLOPENTHIXOL HYDROCHLORIDE [Suspect]
     Active Substance: ZUCLOPENTHIXOL HYDROCHLORIDE
     Dosage: UNK
     Route: 065
  16. ZUCLOPENTHIXOL ACETATE [Suspect]
     Active Substance: ZUCLOPENTHIXOL ACETATE
     Indication: Schizoaffective disorder
     Dosage: UNK
     Route: 065
  17. ZUCLOPENTHIXOL ACETATE [Suspect]
     Active Substance: ZUCLOPENTHIXOL ACETATE
     Dosage: UNK
     Route: 065
  18. ZUCLOPENTHIXOL DECANOATE [Suspect]
     Active Substance: ZUCLOPENTHIXOL DECANOATE
     Indication: Schizoaffective disorder
     Dosage: UNK
     Route: 065
  19. ZUCLOPENTHIXOL DECANOATE [Suspect]
     Active Substance: ZUCLOPENTHIXOL DECANOATE
     Dosage: UNK
     Route: 065
  20. EDOXABAN [Concomitant]
     Active Substance: EDOXABAN
     Indication: Product used for unknown indication
     Dosage: UNK
     Route: 065
  21. EDOXABAN [Concomitant]
     Active Substance: EDOXABAN
     Dosage: UNK
     Route: 065
  22. LANSOPRAZOLE [Concomitant]
     Active Substance: LANSOPRAZOLE
     Indication: Product used for unknown indication
     Dosage: UNK
     Route: 065
  23. LANSOPRAZOLE [Concomitant]
     Active Substance: LANSOPRAZOLE
     Dosage: UNK
     Route: 065
  24. PERINDOPRIL [Concomitant]
     Active Substance: PERINDOPRIL
     Indication: Product used for unknown indication
     Dosage: UNK
     Route: 065
  25. PERINDOPRIL [Concomitant]
     Active Substance: PERINDOPRIL
     Dosage: UNK
     Route: 065

REACTIONS (8)
  - Mean cell haemoglobin concentration decreased [Unknown]
  - Monocyte count increased [Unknown]
  - Mean cell haemoglobin decreased [Unknown]
  - Psychotic symptom [Unknown]
  - Schizoaffective disorder [Unknown]
  - Product use in unapproved indication [Unknown]
  - Atrial fibrillation [Recovered/Resolved]
  - Drug resistance [Not Recovered/Not Resolved]

NARRATIVE: CASE EVENT DATE: 20200507
